FAERS Safety Report 8430970-6 (Version None)
Quarter: 2012Q2

REPORT INFORMATION
  Report Type: 
  Country: None (occurrence: None)
  Receive Date: 20120612
  Receipt Date: 20120604
  Transmission Date: 20120825
  Serious: Yes (Hospitalization)
  Sender: FDA-Public Use
  Company Number: JP-FRI-1000031257

PATIENT
  Age: 80 Year
  Sex: Male

DRUGS (9)
  1. PLETAL [Concomitant]
  2. MEMANTINE HCL [Suspect]
     Indication: DEMENTIA ALZHEIMER'S TYPE
     Dosage: 5 MG
     Route: 048
     Dates: start: 20120523, end: 20120601
  3. SYMMETREL [Concomitant]
  4. MAGMITT [Concomitant]
  5. LENDEM [Concomitant]
  6. NATEGLINIDE [Concomitant]
  7. OLMESARTAN MEDOXOMIL [Concomitant]
  8. MUCODYNE [Concomitant]
  9. MUCOSTA [Concomitant]

REACTIONS (1)
  - RENAL DISORDER [None]
